FAERS Safety Report 10670638 (Version 1)
Quarter: 2014Q4

REPORT INFORMATION
  Report Type: Spontaneous
  Country: US (occurrence: None)
  Receive Date: 20141219
  Receipt Date: 20141219
  Transmission Date: 20150529
  Serious: Yes (Death, Hospitalization)
  Sender: FDA-Public Use
  Company Number: 1713747-2013-99927

PATIENT
  Age: 56 Year
  Sex: Male

DRUGS (3)
  1. LIBERTY CYCLER [Concomitant]
     Active Substance: DEVICE
  2. LIBERTY CYCLER TUBING [Concomitant]
  3. DELFLEX [Suspect]
     Active Substance: CALCIUM CHLORIDE\DEXTROSE MONOHYDRATE\MAGNESIUM CHLORIDE\SODIUM CHLORIDE\SODIUM LACTATE
     Indication: CHRONIC KIDNEY DISEASE
     Dates: start: 2005, end: 20130703

REACTIONS (1)
  - Unresponsive to stimuli [None]

NARRATIVE: CASE EVENT DATE: 20130703
